FAERS Safety Report 17985260 (Version 28)
Quarter: 2022Q2

REPORT INFORMATION
  Report Type: Spontaneous
  Country: GB (occurrence: None)
  Receive Date: 20200706
  Receipt Date: 20220630
  Transmission Date: 20220721
  Serious: Yes (Death, Life-Threatening, Hospitalization, Disabling, Congenital Anomaly, Other)
  Sender: FDA-Public Use
  Company Number: 2020SE83383

PATIENT
  Age: 56 Year
  Sex: Male
  Weight: 92 kg

DRUGS (134)
  1. OMEPRAZOLE [Suspect]
     Active Substance: OMEPRAZOLE
     Indication: Abdominal discomfort
     Dosage: 40 MILLIGRAM, QD (20 MG, BID)
     Route: 048
  2. OMEPRAZOLE [Suspect]
     Active Substance: OMEPRAZOLE
     Indication: Abdominal discomfort
     Dosage: 40 MILLIGRAM, QD (20 MG, BID)
     Route: 048
  3. OMEPRAZOLE [Suspect]
     Active Substance: OMEPRAZOLE
     Indication: Abdominal discomfort
     Dosage: 20 MILLIGRAM (20 MG)20.0MG UNKNOWN
     Route: 048
  4. OMEPRAZOLE [Suspect]
     Active Substance: OMEPRAZOLE
     Indication: Abdominal discomfort
     Dosage: 20 MILLIGRAM20.0MG UNKNOWN
     Route: 048
  5. OMEPRAZOLE [Suspect]
     Active Substance: OMEPRAZOLE
     Indication: Abdominal discomfort
     Dosage: 40 MILLIGRAM, QD (20 MG, BID)40.0MG UNKNOWN
     Route: 048
  6. OMEPRAZOLE [Suspect]
     Active Substance: OMEPRAZOLE
     Indication: Abdominal discomfort
     Dosage: 40 MILLIGRAM, QD, (20 MG, Q12H (20 MG, BID)40.0MG UNKNOWN
     Route: 048
  7. OMEPRAZOLE [Suspect]
     Active Substance: OMEPRAZOLE
     Indication: Abdominal discomfort
     Dosage: 40 MILLIGRAM, QD (20 MG, BID)40.0MG UNKNOWN
     Route: 048
  8. OMEPRAZOLE [Suspect]
     Active Substance: OMEPRAZOLE
     Indication: Abdominal discomfort
     Dosage: 40 MILLIGRAM, QD (20 MG, BID)40.0MG UNKNOWN
     Route: 048
  9. OMEPRAZOLE [Suspect]
     Active Substance: OMEPRAZOLE
     Indication: Abdominal discomfort
     Dosage: 40 MILLIGRAM, QD (20 MG, BID)40.0MG UNKNOWN
     Route: 048
  10. OMEPRAZOLE [Suspect]
     Active Substance: OMEPRAZOLE
     Indication: Abdominal discomfort
     Dosage: 12 MILLIGRAM, BID (CUTANENOUS FOAM)24.0MG UNKNOWN
     Route: 048
  11. OMEPRAZOLE [Suspect]
     Active Substance: OMEPRAZOLE
     Indication: Abdominal discomfort
     Dosage: 400 MILLIGRAM, QD400.0MG UNKNOWN
     Route: 048
  12. OMEPRAZOLE [Suspect]
     Active Substance: OMEPRAZOLE
     Indication: Abdominal discomfort
     Dosage: 20 MILLIGRAM20.0MG UNKNOWN
     Route: 048
  13. OMEPRAZOLE [Suspect]
     Active Substance: OMEPRAZOLE
     Indication: Abdominal discomfort
     Dosage: 40 MILLIGRAM, QD (20 MG, BID)40.0MG UNKNOWN
     Route: 048
  14. OMEPRAZOLE [Suspect]
     Active Substance: OMEPRAZOLE
     Indication: Abdominal discomfort
     Dosage: 20 MILLIGRAM (20 MG)20.0MG UNKNOWN
     Route: 048
  15. OMEPRAZOLE [Suspect]
     Active Substance: OMEPRAZOLE
     Indication: Abdominal discomfort
     Dosage: 40 MILLIGRAM, QD (20 MG, BID)40.0MG UNKNOWN
     Route: 048
  16. OMEPRAZOLE [Suspect]
     Active Substance: OMEPRAZOLE
     Indication: Abdominal discomfort
     Dosage: 400 MICROGRAM (CUTANEOUS FOAM), 400 UG/INHAL, UNKNOWN UNKNOWN
     Route: 048
  17. OMEPRAZOLE [Suspect]
     Active Substance: OMEPRAZOLE
     Indication: Abdominal discomfort
     Dosage: 24 MILLIGRAM, QD (12 MG, BID)24.0MG UNKNOWN
     Route: 048
  18. OMEPRAZOLE [Suspect]
     Active Substance: OMEPRAZOLE
     Indication: Abdominal discomfort
     Dosage: 400 MICROGRAM, 400 UG/INHAL, UNKNOWN UNKNOWN
     Route: 048
  19. TAMSULOSIN [Suspect]
     Active Substance: TAMSULOSIN
     Indication: Product used for unknown indication
     Dosage: 400 UG, 400 UG/INHAL UNKNOWN
     Route: 065
  20. TAMSULOSIN [Suspect]
     Active Substance: TAMSULOSIN
     Indication: Product used for unknown indication
     Dosage: 400 UG, 400 UG/INHAL UNKNOWN
     Route: 065
  21. CIPROFLOXACIN [Suspect]
     Active Substance: CIPROFLOXACIN
     Indication: Depression
     Dosage: 1000 MILLIGRAM, QD
     Route: 065
     Dates: start: 20100917
  22. CIPROFLOXACIN [Suspect]
     Active Substance: CIPROFLOXACIN
     Indication: Rheumatoid arthritis
     Dosage: 1000 MILLIGRAM, QD
     Route: 065
     Dates: start: 20100917
  23. CIPROFLOXACIN [Suspect]
     Active Substance: CIPROFLOXACIN
     Indication: Abdominal discomfort
     Dosage: 1000 MILLIGRAM, QD
     Route: 065
     Dates: start: 20100917
  24. CIPROFLOXACIN [Suspect]
     Active Substance: CIPROFLOXACIN
     Indication: Depression
     Dosage: UNKNOWN
     Route: 065
  25. CIPROFLOXACIN [Suspect]
     Active Substance: CIPROFLOXACIN
     Indication: Rheumatoid arthritis
     Dosage: UNKNOWN
     Route: 065
  26. CIPROFLOXACIN [Suspect]
     Active Substance: CIPROFLOXACIN
     Indication: Abdominal discomfort
     Dosage: UNKNOWN
     Route: 065
  27. FOLIC ACID [Suspect]
     Active Substance: FOLIC ACID
     Indication: Product used for unknown indication
     Dosage: 5 MILLIGRAM, ONCE A DAY (5 MG ORAL SOLUTION)
     Route: 048
  28. FOLIC ACID [Suspect]
     Active Substance: FOLIC ACID
     Indication: Product used for unknown indication
     Dosage: 5 MILLIGRAM (5 MG (ORAL SOLUTION))
     Route: 048
  29. FOLIC ACID [Suspect]
     Active Substance: FOLIC ACID
     Indication: Product used for unknown indication
     Dosage: 5 MILLIGRAM (5 MG ORAL SOLUTION)5.0MG UNKNOWN
     Route: 048
  30. FOLIC ACID [Suspect]
     Active Substance: FOLIC ACID
     Indication: Product used for unknown indication
     Dosage: 5 MILLIGRAM5.0MG UNKNOWN
     Route: 065
  31. FOLIC ACID [Suspect]
     Active Substance: FOLIC ACID
     Indication: Product used for unknown indication
     Dosage: 5 MILLIGRAM5.0MG UNKNOWN
     Route: 048
  32. VENLAFAXINE [Suspect]
     Active Substance: VENLAFAXINE HYDROCHLORIDE
     Indication: Product used for unknown indication
     Dosage: 225 MILLIGRAM, QD (225 MG, DAILY, ONCE A DAY, PROLONGED RELEASE )
     Route: 065
  33. VENLAFAXINE [Suspect]
     Active Substance: VENLAFAXINE HYDROCHLORIDE
     Indication: Rheumatoid arthritis
     Dosage: 225 MILLIGRAM, QD (225 MG, DAILY, ONCE A DAY, PROLONGED RELEASE )
     Route: 065
  34. VENLAFAXINE [Suspect]
     Active Substance: VENLAFAXINE HYDROCHLORIDE
     Indication: Product used for unknown indication
     Route: 065
  35. VENLAFAXINE [Suspect]
     Active Substance: VENLAFAXINE HYDROCHLORIDE
     Indication: Rheumatoid arthritis
     Route: 065
  36. ETANERCEPT [Suspect]
     Active Substance: ETANERCEPT
     Indication: Rheumatoid arthritis
     Dosage: 50 MILLIGRAM, QD
     Route: 065
  37. VENLAFAXINE HYDROCHLORIDE [Suspect]
     Active Substance: VENLAFAXINE HYDROCHLORIDE
     Indication: Depression
     Dosage: UNKNOWN
     Route: 065
  38. VENLAFAXINE HYDROCHLORIDE [Suspect]
     Active Substance: VENLAFAXINE HYDROCHLORIDE
     Indication: Rheumatoid arthritis
     Dosage: UNKNOWN
     Route: 065
  39. VENLAFAXINE HYDROCHLORIDE [Suspect]
     Active Substance: VENLAFAXINE HYDROCHLORIDE
     Indication: Depression
     Dosage: 225 MG, DAILY, ONCE A DAY, PROLONGED RELEASE
     Route: 065
  40. VENLAFAXINE HYDROCHLORIDE [Suspect]
     Active Substance: VENLAFAXINE HYDROCHLORIDE
     Indication: Rheumatoid arthritis
     Dosage: 225 MG, DAILY, ONCE A DAY, PROLONGED RELEASE
     Route: 065
  41. CARBAMAZEPINE [Suspect]
     Active Substance: CARBAMAZEPINE
     Indication: Product used for unknown indication
     Dosage: 750 MILLIGRAM, QD
     Route: 048
  42. PHYLLOCONTIN [Suspect]
     Active Substance: AMINOPHYLLINE
     Indication: Product used for unknown indication
     Dosage: 400 MG, QD
     Route: 065
     Dates: start: 20100917
  43. METHOTREXATE SODIUM [Suspect]
     Active Substance: METHOTREXATE SODIUM
     Indication: Rheumatoid arthritis
     Dosage: 18 MILLIGRAM, QW
     Route: 065
     Dates: start: 20100917
  44. METHOTREXATE SODIUM [Suspect]
     Active Substance: METHOTREXATE SODIUM
     Indication: Rheumatoid arthritis
     Dosage: 17.5 MG, QD
     Route: 065
     Dates: start: 20100917
  45. SIMVASTATIN [Suspect]
     Active Substance: SIMVASTATIN
     Indication: Product used for unknown indication
     Dosage: 20.0MG UNKNOWN
     Route: 048
  46. SIMVASTATIN [Suspect]
     Active Substance: SIMVASTATIN
     Indication: Product used for unknown indication
     Dosage: 20.0MG UNKNOWN
     Route: 048
  47. SIMVASTATIN [Suspect]
     Active Substance: SIMVASTATIN
     Indication: Product used for unknown indication
     Dosage: UNKNOWN UNKNOWN
     Route: 065
  48. SIMVASTATIN [Suspect]
     Active Substance: SIMVASTATIN
     Indication: Product used for unknown indication
     Dosage: UNKNOWN UNKNOWN
     Route: 048
  49. SIMVASTATIN [Suspect]
     Active Substance: SIMVASTATIN
     Indication: Product used for unknown indication
     Dosage: 400 UG, 400 UG/INHAL, UNKNOWN UNKNOWN
     Route: 048
  50. CLOZARIL [Suspect]
     Active Substance: CLOZAPINE
     Indication: Schizophrenia
     Dosage: 8 MILLIGRAM, QD
     Route: 048
     Dates: start: 202005
  51. CLOZARIL [Suspect]
     Active Substance: CLOZAPINE
     Indication: Schizophrenia
     Dosage: 400 MILLIGRAM400.0MG UNKNOWN
     Route: 048
     Dates: start: 20090403
  52. CLOZARIL [Suspect]
     Active Substance: CLOZAPINE
     Indication: Schizophrenia
     Dosage: 8 MILLIGRAM, QD/21-MAY-20208.0MG UNKNOWN
     Route: 048
     Dates: start: 20200521, end: 202005
  53. CLOZARIL [Suspect]
     Active Substance: CLOZAPINE
     Indication: Schizophrenia
     Dosage: 20 MILLIGRAM, BID (20 MG, BID)40.0MG UNKNOWN
     Route: 048
  54. CLOZARIL [Suspect]
     Active Substance: CLOZAPINE
     Indication: Schizophrenia
     Dosage: UNKNOWN UNKNOWN
     Route: 048
     Dates: start: 20090403
  55. CLOZARIL [Suspect]
     Active Substance: CLOZAPINE
     Indication: Schizophrenia
     Dosage: 400 MILLIGRAM/03-APR-2020400.0MG UNKNOWN
     Route: 048
  56. CLOZARIL [Suspect]
     Active Substance: CLOZAPINE
     Indication: Schizophrenia
     Dosage: UNK, 03-APR-2020 UNKNOWN
     Route: 048
  57. CLOZARIL [Suspect]
     Active Substance: CLOZAPINE
     Indication: Schizophrenia
     Dosage: 40 MILLIGRAM, QD40.0MG UNKNOWN
     Route: 048
  58. CLOZARIL [Suspect]
     Active Substance: CLOZAPINE
     Indication: Schizophrenia
     Dosage: 8 MILLIGRAM, QD/21-MAY-20208.0MG UNKNOWN
     Route: 048
     Dates: start: 20200521, end: 202005
  59. IRBESARTAN [Suspect]
     Active Substance: IRBESARTAN
     Indication: Product used for unknown indication
     Dosage: 150 MILLIGRAM, QD
     Route: 065
     Dates: start: 20100912
  60. IRBESARTAN [Suspect]
     Active Substance: IRBESARTAN
     Indication: Abdominal discomfort
     Dosage: 150 MILLIGRAM, QD
     Route: 065
     Dates: start: 20100912
  61. IRBESARTAN [Suspect]
     Active Substance: IRBESARTAN
     Indication: Product used for unknown indication
     Route: 065
     Dates: start: 20100917
  62. IRBESARTAN [Suspect]
     Active Substance: IRBESARTAN
     Indication: Abdominal discomfort
     Route: 065
     Dates: start: 20100917
  63. ENBREL [Suspect]
     Active Substance: ETANERCEPT
     Indication: Rheumatoid arthritis
     Dosage: 50 MILLIGRAM, Q.W., WEEKLY, SOLUTION FOR INJECTION IN PREFILLED PEN, MYCLIC PENS
     Route: 065
     Dates: start: 20100917
  64. CARBOCYSTEINE [Suspect]
     Active Substance: CARBOCYSTEINE
     Indication: Rheumatoid arthritis
     Dosage: 750 MILLIGRAM, QD
     Route: 048
     Dates: start: 20100917
  65. CARBOCYSTEINE [Suspect]
     Active Substance: CARBOCYSTEINE
     Indication: Product used for unknown indication
     Dosage: 750 MILLIGRAM, QD
     Route: 048
     Dates: start: 20100917
  66. DEXAMETHASONE [Suspect]
     Active Substance: DEXAMETHASONE
     Indication: Radiotherapy
     Dosage: 2 MILLIGRAM, QD/28-MAY-2020
     Route: 048
  67. DEXAMETHASONE [Suspect]
     Active Substance: DEXAMETHASONE
     Indication: Radiotherapy to pharynx
     Dosage: 2 MILLIGRAM, QD/28-MAY-2020
     Route: 048
  68. DEXAMETHASONE [Suspect]
     Active Substance: DEXAMETHASONE
     Indication: Radiotherapy to pharynx
     Dosage: 2 MILLIGRAM, QD/28-MAY-2020
     Route: 048
  69. DEXAMETHASONE [Suspect]
     Active Substance: DEXAMETHASONE
     Indication: Radiotherapy
     Dosage: 8 MILLIGRAM/MAY-20208.0MG UNKNOWN
     Route: 048
     Dates: start: 20200528
  70. DEXAMETHASONE [Suspect]
     Active Substance: DEXAMETHASONE
     Indication: Radiotherapy to pharynx
     Dosage: 8 MILLIGRAM/MAY-20208.0MG UNKNOWN
     Route: 048
     Dates: start: 20200528
  71. DEXAMETHASONE [Suspect]
     Active Substance: DEXAMETHASONE
     Indication: Radiotherapy to pharynx
     Dosage: 8 MILLIGRAM/MAY-20208.0MG UNKNOWN
     Route: 048
     Dates: start: 20200528
  72. DEXAMETHASONE [Suspect]
     Active Substance: DEXAMETHASONE
     Indication: Radiotherapy
     Dosage: 2 MILLIGRAM, QD/28-MAY-20202.0MG UNKNOWN
     Route: 048
     Dates: end: 20200528
  73. DEXAMETHASONE [Suspect]
     Active Substance: DEXAMETHASONE
     Indication: Radiotherapy to pharynx
     Dosage: 2 MILLIGRAM, QD/28-MAY-20202.0MG UNKNOWN
     Route: 048
     Dates: end: 20200528
  74. DEXAMETHASONE [Suspect]
     Active Substance: DEXAMETHASONE
     Indication: Radiotherapy to pharynx
     Dosage: 2 MILLIGRAM, QD/28-MAY-20202.0MG UNKNOWN
     Route: 048
     Dates: end: 20200528
  75. DEXAMETHASONE [Suspect]
     Active Substance: DEXAMETHASONE
     Indication: Radiotherapy
     Dosage: 10 MILLIGRAM10.0MG UNKNOWN
     Route: 065
  76. DEXAMETHASONE [Suspect]
     Active Substance: DEXAMETHASONE
     Indication: Radiotherapy to pharynx
     Dosage: 10 MILLIGRAM10.0MG UNKNOWN
     Route: 065
  77. DEXAMETHASONE [Suspect]
     Active Substance: DEXAMETHASONE
     Indication: Radiotherapy to pharynx
     Dosage: 10 MILLIGRAM10.0MG UNKNOWN
     Route: 065
  78. DEXAMETHASONE [Suspect]
     Active Substance: DEXAMETHASONE
     Indication: Radiotherapy
     Dosage: 8 MILLIGRAM, QD/21-MAY-20208.0MG UNKNOWN
     Route: 048
     Dates: end: 20200528
  79. DEXAMETHASONE [Suspect]
     Active Substance: DEXAMETHASONE
     Indication: Radiotherapy to pharynx
     Dosage: 8 MILLIGRAM, QD/21-MAY-20208.0MG UNKNOWN
     Route: 048
     Dates: end: 20200528
  80. DEXAMETHASONE [Suspect]
     Active Substance: DEXAMETHASONE
     Indication: Radiotherapy to pharynx
     Dosage: 8 MILLIGRAM, QD/21-MAY-20208.0MG UNKNOWN
     Route: 048
     Dates: end: 20200528
  81. DEXAMETHASONE [Suspect]
     Active Substance: DEXAMETHASONE
     Indication: Radiotherapy
     Dosage: 2 MILLIGRAM, QD/21-MAY-20202.0MG UNKNOWN
     Route: 048
     Dates: end: 20200528
  82. DEXAMETHASONE [Suspect]
     Active Substance: DEXAMETHASONE
     Indication: Radiotherapy to pharynx
     Dosage: 2 MILLIGRAM, QD/21-MAY-20202.0MG UNKNOWN
     Route: 048
     Dates: end: 20200528
  83. DEXAMETHASONE [Suspect]
     Active Substance: DEXAMETHASONE
     Indication: Radiotherapy to pharynx
     Dosage: 2 MILLIGRAM, QD/21-MAY-20202.0MG UNKNOWN
     Route: 048
     Dates: end: 20200528
  84. DEXAMETHASONE [Suspect]
     Active Substance: DEXAMETHASONE
     Indication: Radiotherapy
     Dosage: 8 MILLIGRAM, QD/15-MAY-20208.0MG UNKNOWN
     Route: 048
     Dates: end: 202005
  85. DEXAMETHASONE [Suspect]
     Active Substance: DEXAMETHASONE
     Indication: Radiotherapy to pharynx
     Dosage: 8 MILLIGRAM, QD/15-MAY-20208.0MG UNKNOWN
     Route: 048
     Dates: end: 202005
  86. DEXAMETHASONE [Suspect]
     Active Substance: DEXAMETHASONE
     Indication: Radiotherapy to pharynx
     Dosage: 8 MILLIGRAM, QD/15-MAY-20208.0MG UNKNOWN
     Route: 048
     Dates: end: 202005
  87. DEXAMETHASONE [Suspect]
     Active Substance: DEXAMETHASONE
     Indication: Radiotherapy
     Dosage: 8 MILLIGRAM, QD (START DATE:21-MAY-2020, END DATE: MAY-2021)8.0MG UNKNOWN
     Route: 048
     Dates: end: 20200528
  88. DEXAMETHASONE [Suspect]
     Active Substance: DEXAMETHASONE
     Indication: Radiotherapy to pharynx
     Dosage: 8 MILLIGRAM, QD (START DATE:21-MAY-2020, END DATE: MAY-2021)8.0MG UNKNOWN
     Route: 048
     Dates: end: 20200528
  89. DEXAMETHASONE [Suspect]
     Active Substance: DEXAMETHASONE
     Indication: Radiotherapy to pharynx
     Dosage: 8 MILLIGRAM, QD (START DATE:21-MAY-2020, END DATE: MAY-2021)8.0MG UNKNOWN
     Route: 048
     Dates: end: 20200528
  90. DEXAMETHASONE [Suspect]
     Active Substance: DEXAMETHASONE
     Indication: Radiotherapy
     Dosage: UNK, MAY-2020 UNKNOWN
     Route: 048
  91. DEXAMETHASONE [Suspect]
     Active Substance: DEXAMETHASONE
     Indication: Radiotherapy to pharynx
     Dosage: UNK, MAY-2020 UNKNOWN
     Route: 048
  92. DEXAMETHASONE [Suspect]
     Active Substance: DEXAMETHASONE
     Indication: Radiotherapy to pharynx
     Dosage: UNK, MAY-2020 UNKNOWN
     Route: 048
  93. DEXAMETHASONE [Suspect]
     Active Substance: DEXAMETHASONE
     Indication: Radiotherapy
     Dosage: 8 MILLIGRAM, QD / 28-MAY-20208.0MG UNKNOWN
     Route: 048
  94. DEXAMETHASONE [Suspect]
     Active Substance: DEXAMETHASONE
     Indication: Radiotherapy to pharynx
     Dosage: 8 MILLIGRAM, QD / 28-MAY-20208.0MG UNKNOWN
     Route: 048
  95. DEXAMETHASONE [Suspect]
     Active Substance: DEXAMETHASONE
     Indication: Radiotherapy to pharynx
     Dosage: 8 MILLIGRAM, QD / 28-MAY-20208.0MG UNKNOWN
     Route: 048
  96. DEXAMETHASONE [Suspect]
     Active Substance: DEXAMETHASONE
     Indication: Radiotherapy
     Dosage: 8 MILLIGRAM/21-MAY-20208.0MG UNKNOWN
     Route: 048
     Dates: end: 202005
  97. DEXAMETHASONE [Suspect]
     Active Substance: DEXAMETHASONE
     Indication: Radiotherapy to pharynx
     Dosage: 8 MILLIGRAM/21-MAY-20208.0MG UNKNOWN
     Route: 048
     Dates: end: 202005
  98. DEXAMETHASONE [Suspect]
     Active Substance: DEXAMETHASONE
     Indication: Radiotherapy to pharynx
     Dosage: 8 MILLIGRAM/21-MAY-20208.0MG UNKNOWN
     Route: 048
     Dates: end: 202005
  99. DEXAMETHASONE [Suspect]
     Active Substance: DEXAMETHASONE
     Indication: Radiotherapy
     Dosage: 8 MILLIGRAM, QD8.0MG UNKNOWN
     Route: 048
  100. DEXAMETHASONE [Suspect]
     Active Substance: DEXAMETHASONE
     Indication: Radiotherapy to pharynx
     Dosage: 8 MILLIGRAM, QD8.0MG UNKNOWN
     Route: 048
  101. DEXAMETHASONE [Suspect]
     Active Substance: DEXAMETHASONE
     Indication: Radiotherapy to pharynx
     Dosage: 8 MILLIGRAM, QD8.0MG UNKNOWN
     Route: 048
  102. CIPROFLOXACIN [Suspect]
     Active Substance: CIPROFLOXACIN
     Indication: Product used for unknown indication
     Dosage: 1000.0MG UNKNOWN
     Route: 065
     Dates: start: 20100917
  103. CIPROFLOXACIN [Suspect]
     Active Substance: CIPROFLOXACIN
     Indication: Rheumatoid arthritis
     Dosage: 1000.0MG UNKNOWN
     Route: 065
     Dates: start: 20100917
  104. CIPROFLOXACIN [Suspect]
     Active Substance: CIPROFLOXACIN
     Indication: Abdominal discomfort
     Dosage: 1000.0MG UNKNOWN
     Route: 065
     Dates: start: 20100917
  105. CIPROFLOXACIN [Suspect]
     Active Substance: CIPROFLOXACIN
     Indication: Product used for unknown indication
     Dosage: 1000.0MG UNKNOWN
     Route: 065
     Dates: start: 20100917
  106. CIPROFLOXACIN [Suspect]
     Active Substance: CIPROFLOXACIN
     Indication: Rheumatoid arthritis
     Dosage: 1000.0MG UNKNOWN
     Route: 065
     Dates: start: 20100917
  107. CIPROFLOXACIN [Suspect]
     Active Substance: CIPROFLOXACIN
     Indication: Abdominal discomfort
     Dosage: 1000.0MG UNKNOWN
     Route: 065
     Dates: start: 20100917
  108. GUANIDINE [Suspect]
     Active Substance: GUANIDINE
     Indication: Product used for unknown indication
     Dosage: 750 MG
     Route: 065
  109. GUANIDINE [Suspect]
     Active Substance: GUANIDINE
     Indication: Depression
     Dosage: 750 MG
     Route: 065
  110. DITIOCARB [Suspect]
     Active Substance: DITIOCARB
     Indication: Product used for unknown indication
     Dosage: 750 MG
     Route: 065
  111. DITIOCARB [Suspect]
     Active Substance: DITIOCARB
     Indication: Abdominal discomfort
     Dosage: 750 MG
     Route: 065
  112. SULFAGUANIDINE [Suspect]
     Active Substance: SULFAGUANIDINE
     Indication: Product used for unknown indication
     Dosage: 750 MG
     Route: 065
  113. AMINOPHYLLINE [Suspect]
     Active Substance: AMINOPHYLLINE
     Indication: Product used for unknown indication
     Dosage: 400 MG, QD
     Route: 065
     Dates: start: 20100917
  114. ZINC [Suspect]
     Active Substance: ZINC
     Dosage: 750 MILLIGRAM, DAILY
     Route: 065
  115. ZINC [Suspect]
     Active Substance: ZINC
     Dosage: DAILY
     Route: 065
  116. CETIRIZINE [Concomitant]
     Active Substance: CETIRIZINE HYDROCHLORIDE
     Indication: Product used for unknown indication
     Route: 065
  117. CETIRIZINE [Concomitant]
     Active Substance: CETIRIZINE HYDROCHLORIDE
     Indication: Abdominal discomfort
     Route: 065
  118. CABERGOLINE [Concomitant]
     Active Substance: CABERGOLINE
     Indication: Empty sella syndrome
     Route: 065
  119. CABERGOLINE [Concomitant]
     Active Substance: CABERGOLINE
     Indication: Pituitary tumour
     Route: 065
  120. EZETIMIBE [Concomitant]
     Active Substance: EZETIMIBE
     Indication: Rheumatoid arthritis
     Route: 065
  121. EZETIMIBE [Concomitant]
     Active Substance: EZETIMIBE
     Indication: Depression
     Route: 065
  122. EZETIMIBE [Concomitant]
     Active Substance: EZETIMIBE
     Indication: Abdominal discomfort
     Route: 065
  123. ORUVAIL [Concomitant]
     Active Substance: KETOPROFEN
     Indication: Empty sella syndrome
     Route: 065
  124. ORUVAIL [Concomitant]
     Active Substance: KETOPROFEN
     Indication: Pituitary tumour
     Route: 065
  125. BENDROFLUMETHIAZIDE [Concomitant]
     Active Substance: BENDROFLUMETHIAZIDE
     Indication: Pituitary tumour
     Route: 065
  126. BENDROFLUMETHIAZIDE [Concomitant]
     Active Substance: BENDROFLUMETHIAZIDE
     Indication: Depression
     Route: 065
  127. LEVOTHYROXINE [Concomitant]
     Active Substance: LEVOTHYROXINE
     Indication: Product used for unknown indication
     Route: 065
  128. LEVOTHYROXINE [Concomitant]
     Active Substance: LEVOTHYROXINE
     Indication: Abdominal discomfort
     Route: 065
  129. FOLIC ACID [Concomitant]
     Active Substance: FOLIC ACID
     Indication: Product used for unknown indication
     Dosage: 5 MILLIGRAM, ONCE A DAY (5 MG ORAL SOLUTION)
     Route: 048
  130. FOLIC ACID [Concomitant]
     Active Substance: FOLIC ACID
     Indication: Product used for unknown indication
     Dosage: 5 MILLIGRAM (5 MG (ORAL SOLUTION))
     Route: 048
  131. FOLIC ACID [Concomitant]
     Active Substance: FOLIC ACID
     Indication: Product used for unknown indication
     Dosage: 5 MILLIGRAM (5 MG ORAL SOLUTION)5.0MG UNKNOWN
     Route: 048
  132. FOLIC ACID [Concomitant]
     Active Substance: FOLIC ACID
     Indication: Product used for unknown indication
     Dosage: 5 MILLIGRAM5.0MG UNKNOWN
     Route: 065
  133. FOLIC ACID [Concomitant]
     Active Substance: FOLIC ACID
     Indication: Product used for unknown indication
     Dosage: 5 MILLIGRAM5.0MG UNKNOWN
     Route: 048
  134. ACTIVATED CHARCOAL [Concomitant]
     Active Substance: ACTIVATED CHARCOAL
     Dosage: 750 MG UNKNOWN
     Route: 065

REACTIONS (17)
  - Overdose [Fatal]
  - COVID-19 [Fatal]
  - Radiation inflammation [Fatal]
  - Lung neoplasm malignant [Fatal]
  - Schizophrenia [Fatal]
  - Inflammation [Fatal]
  - Condition aggravated [Fatal]
  - Knee arthroplasty [Fatal]
  - Pulmonary pain [Fatal]
  - Lower respiratory tract infection [Fatal]
  - Arthropathy [Fatal]
  - Rash [Fatal]
  - Abdominal discomfort [Fatal]
  - Product dose omission issue [Fatal]
  - Intentional product misuse [Fatal]
  - Off label use [Fatal]
  - Drug abuse [Fatal]

NARRATIVE: CASE EVENT DATE: 20200401
